FAERS Safety Report 8592482-9 (Version None)
Quarter: 2012Q3

REPORT INFORMATION
  Report Type: 
  Country: None (occurrence: None)
  Receive Date: 20120814
  Receipt Date: 20120731
  Transmission Date: 20120928
  Serious: No
  Sender: FDA-Public Use
  Company Number: JP-009507513-1207JPN011742

PATIENT

DRUGS (8)
  1. BETAHISTINE MESYLATE [Concomitant]
     Route: 048
  2. MECOBALAMIN [Concomitant]
     Route: 048
  3. LANSOPRAZOLE [Concomitant]
     Route: 048
  4. CLOSTRIDIUM BUTYRICUM [Concomitant]
     Route: 048
  5. REBAMIPIDE [Concomitant]
     Route: 048
  6. MIRTAZAPINE [Suspect]
     Indication: ANXIETY
     Dosage: 7.5 MG, ONCE
     Route: 048
     Dates: start: 20120706, end: 20120706
  7. VALSARTAN [Concomitant]
     Route: 048
  8. STREPTOCOCCUS FAECALIS [Concomitant]
     Route: 048

REACTIONS (3)
  - THIRST [None]
  - HYPOAESTHESIA [None]
  - SOMNOLENCE [None]
